FAERS Safety Report 8867818 (Version 1)
Quarter: 2012Q4

REPORT INFORMATION
  Report Type: 
  Country: US (occurrence: US)
  Receive Date: 20121026
  Receipt Date: 20121026
  Transmission Date: 20130627
  Serious: No
  Sender: FDA-Public Use
  Company Number: US-AMGEN-USASP2012041218

PATIENT
  Age: 23 Year
  Sex: Female
  Weight: 58.96 kg

DRUGS (7)
  1. ENBREL [Suspect]
     Indication: PRODUCT USED FOR UNKNOWN INDICATION
     Dosage: 25 mg, every four days
     Route: 058
  2. ZYRTEC [Concomitant]
     Dosage: 10 mg, UNK
  3. ARAVA [Concomitant]
     Dosage: 10 mg, UNK
  4. IBUPROFEN [Concomitant]
     Dosage: 200 mg, UNK
  5. SEASONIQUE [Concomitant]
     Dosage: UNK
  6. VITAMIN B 12 [Concomitant]
     Dosage: 100 mug, UNK
  7. BUTRANS                            /00444001/ [Concomitant]
     Dosage: 5 mug/hour

REACTIONS (1)
  - Ear infection [Unknown]
